FAERS Safety Report 8176418-0 (Version None)
Quarter: 2012Q1

REPORT INFORMATION
  Report Type: 
  Country: None (occurrence: None)
  Receive Date: 20120228
  Receipt Date: 20120217
  Transmission Date: 20120608
  Serious: Yes (Other)
  Sender: FDA-Public Use
  Company Number: US-1190477

PATIENT
  Age: 73 Year
  Sex: Male

DRUGS (7)
  1. EPINEPHRINE [Concomitant]
  2. LIDOCAINE [Concomitant]
  3. MIOSTAT [Suspect]
     Indication: INTRAOCULAR LENS IMPLANT
     Dosage: (INTRAOCULAR)
     Route: 031
     Dates: start: 20120123, end: 20120123
  4. BSS [Suspect]
     Indication: INTRAOCULAR LENS IMPLANT
     Dosage: (INTRAOCULAR)
     Route: 031
     Dates: start: 20120123, end: 20120123
  5. IOPIDINE [Concomitant]
  6. BSS PLUS [Suspect]
     Indication: INTRAOCULAR LENS IMPLANT
     Dosage: (INTRAOCULAR)
     Route: 031
     Dates: start: 20120123, end: 20120123
  7. TIMOPTIC [Concomitant]

REACTIONS (3)
  - MEDICATION ERROR [None]
  - VISUAL ACUITY REDUCED [None]
  - TOXIC ANTERIOR SEGMENT SYNDROME [None]
